FAERS Safety Report 8999668 (Version 1)
Quarter: 2013Q1

REPORT INFORMATION
  Report Type: Spontaneous
  Country: US (occurrence: US)
  Receive Date: 20130102
  Receipt Date: 20130102
  Transmission Date: 20140127
  Serious: No
  Sender: FDA-Public Use
  Company Number: US-BAYER-2013-000258

PATIENT
  Sex: Female

DRUGS (9)
  1. BETASERON [Suspect]
     Dosage: 0.25 MG, QOD
     Route: 058
  2. AMPYRA [Suspect]
     Dosage: 10 MG, UNK
  3. BACLOFEN [Concomitant]
     Dosage: 10 MG, UNK
  4. VESICARE [Concomitant]
     Dosage: 10 MG, UNK
  5. SENOKOT [Concomitant]
     Dosage: 8.6 MG, UNK
  6. COLACE [Concomitant]
     Dosage: 100 MG, UNK
  7. WARFARIN [Concomitant]
     Dosage: 10 MG, UNK
  8. TIZANIDINE [Concomitant]
     Dosage: 2 MG, UNK
  9. PRIMIDONE [Concomitant]
     Dosage: 250 MG, UNK

REACTIONS (3)
  - Hypoaesthesia [Unknown]
  - Paraesthesia [Unknown]
  - Musculoskeletal stiffness [Unknown]
